FAERS Safety Report 7948031-9 (Version None)
Quarter: 2011Q4

REPORT INFORMATION
  Report Type: 
  Country: None (occurrence: None)
  Receive Date: 20111121
  Receipt Date: 20111111
  Transmission Date: 20120403
  Serious: Yes (Hospitalization, Disabling, Other)
  Sender: FDA-Public Use
  Company Number: 2010SP046375

PATIENT
  Age: 26 Year
  Sex: Female
  Weight: 80.7403 kg

DRUGS (2)
  1. NUVARING [Suspect]
     Indication: CONTRACEPTION
     Dates: start: 20070701
  2. NUVARING [Suspect]
     Indication: CONTRACEPTION
     Dates: start: 20081201, end: 20090820

REACTIONS (21)
  - NASOPHARYNGITIS [None]
  - COUGH [None]
  - ANXIETY [None]
  - NAUSEA [None]
  - CHEST PAIN [None]
  - GASTROENTERITIS VIRAL [None]
  - PULMONARY EMBOLISM [None]
  - MULTIPLE INJURIES [None]
  - HEADACHE [None]
  - DEEP VEIN THROMBOSIS [None]
  - FIBRIN D DIMER INCREASED [None]
  - URINARY TRACT INFECTION [None]
  - DYSPNOEA EXERTIONAL [None]
  - LOW DENSITY LIPOPROTEIN INCREASED [None]
  - VULVOVAGINITIS TRICHOMONAL [None]
  - INTERNATIONAL NORMALISED RATIO DECREASED [None]
  - PRESYNCOPE [None]
  - SOFT TISSUE DISORDER [None]
  - THROMBOSIS [None]
  - URTICARIA [None]
  - RASH [None]
